FAERS Safety Report 21351876 (Version 3)
Quarter: 2022Q4

REPORT INFORMATION
  Report Type: Report from Study
  Country: US (occurrence: US)
  Receive Date: 20220920
  Receipt Date: 20221125
  Transmission Date: 20230113
  Serious: Yes (Other)
  Sender: FDA-Public Use
  Company Number: US-NOVARTISTESTPH-NVSC2022US209814

PATIENT
  Sex: Female

DRUGS (3)
  1. TREPROSTINIL [Suspect]
     Active Substance: TREPROSTINIL
     Indication: Pulmonary arterial hypertension
     Dosage: 37.3 NG/KG/MIN, CONT
     Route: 058
     Dates: start: 20220701
  2. TREPROSTINIL [Suspect]
     Active Substance: TREPROSTINIL
     Dosage: 94.7 NG/KG/MIN, CONTINUOUS
     Route: 058
     Dates: start: 20221117
  3. IMODIUM [Concomitant]
     Active Substance: LOPERAMIDE HYDROCHLORIDE
     Indication: Product used for unknown indication
     Dosage: UNK
     Route: 065

REACTIONS (13)
  - Pulmonary hypertension [Unknown]
  - Dyspnoea [Unknown]
  - Cyanosis [Unknown]
  - Dizziness [Unknown]
  - Burning sensation [Unknown]
  - Injection site pruritus [Unknown]
  - Injection site pain [Unknown]
  - Injection site irritation [Unknown]
  - Diarrhoea [Unknown]
  - Headache [Unknown]
  - Nausea [Unknown]
  - Pain in jaw [Unknown]
  - Pruritus [Unknown]
